FAERS Safety Report 23035176 (Version 1)
Quarter: 2023Q4

REPORT INFORMATION
  Report Type: Spontaneous
  Country: US (occurrence: US)
  Receive Date: 20231005
  Receipt Date: 20231005
  Transmission Date: 20240110
  Serious: No
  Sender: FDA-Public Use
  Company Number: US-009507513-2309USA002962

PATIENT
  Age: 45 Year
  Sex: Female

DRUGS (2)
  1. TEMODAR [Suspect]
     Active Substance: TEMOZOLOMIDE
     Indication: Glioblastoma
  2. PAMIPARIB [Suspect]
     Active Substance: PAMIPARIB
     Indication: Glioblastoma

REACTIONS (1)
  - Adverse drug reaction [Unknown]
